FAERS Safety Report 9715820 (Version 1)
Quarter: 2013Q4

REPORT INFORMATION
  Report Type: Spontaneous
  Country: US (occurrence: US)
  Receive Date: 20131127
  Receipt Date: 20131127
  Transmission Date: 20140711
  Serious: Yes (Hospitalization)
  Sender: FDA-Public Use
  Company Number: US-TEVA-446643USA

PATIENT
  Age: 72 Year
  Sex: Male
  Weight: 68.1 kg

DRUGS (4)
  1. TREANDA [Suspect]
     Indication: NON-HODGKIN^S LYMPHOMA
     Dosage: CYCLE 1
     Route: 042
  2. TREANDA [Suspect]
     Dosage: CYCLE 2
     Route: 042
  3. ANTIBIOTICS [Concomitant]
     Indication: PYREXIA
  4. STEROIDS [Concomitant]
     Indication: PRODUCT USED FOR UNKNOWN INDICATION

REACTIONS (13)
  - Pyrexia [Not Recovered/Not Resolved]
  - Rash [Recovered/Resolved]
  - Dysphagia [Recovered/Resolved]
  - Weight increased [Recovered/Resolved]
  - Fatigue [Not Recovered/Not Resolved]
  - Asthenia [Not Recovered/Not Resolved]
  - Dehydration [Recovered/Resolved]
  - Blood count abnormal [Not Recovered/Not Resolved]
  - Chills [Recovered/Resolved]
  - Dry mouth [Recovered/Resolved]
  - Candida infection [Unknown]
  - Oedema [Recovered/Resolved]
  - Anaemia [Not Recovered/Not Resolved]
